FAERS Safety Report 5609750-2 (Version None)
Quarter: 2008Q1

REPORT INFORMATION
  Report Type: 
  Country: None (occurrence: None)
  Receive Date: 20080131
  Receipt Date: 20071025
  Transmission Date: 20080703
  Serious: No
  Sender: FDA-Public Use
  Company Number: US-BAYER-200713486BCC

PATIENT
  Sex: Female

DRUGS (1)
  1. ALEVE COLD AND SINUS [Suspect]
     Indication: NASAL CONGESTION
     Route: 048
     Dates: start: 20071025

REACTIONS (1)
  - DIZZINESS [None]
